FAERS Safety Report 17332254 (Version 3)
Quarter: 2020Q1

REPORT INFORMATION
  Report Type: Report from Study
  Country: MX (occurrence: MX)
  Receive Date: 20200127
  Receipt Date: 20200303
  Transmission Date: 20200409
  Serious: Yes (Other)
  Sender: FDA-Public Use
  Company Number: MX-SUN PHARMACEUTICAL INDUSTRIES LTD-2020R1-233948

PATIENT
  Age: 28 Year
  Sex: Female
  Weight: 92.5 kg

DRUGS (9)
  1. PLACEBO [Suspect]
     Active Substance: UNSPECIFIED INGREDIENT
     Indication: PSORIATIC ARTHROPATHY
     Dosage: UNK
     Route: 058
     Dates: start: 20190409, end: 20200107
  2. BLINDED TILDRAKIZUMAB [Suspect]
     Active Substance: TILDRAKIZUMAB
     Indication: PSORIATIC ARTHROPATHY
     Dosage: UNK
     Route: 058
     Dates: start: 20190409, end: 20200107
  3. BLINDED TILDRAKIZUMAB 20 MG/ML INJECTION [Suspect]
     Active Substance: TILDRAKIZUMAB
     Indication: PSORIATIC ARTHROPATHY
     Dosage: UNK
     Route: 058
     Dates: start: 20190409, end: 20200107
  4. BLINDED ETANERCEPT [Suspect]
     Active Substance: ETANERCEPT
     Indication: PSORIATIC ARTHROPATHY
     Dosage: UNK
     Route: 058
     Dates: start: 20190409, end: 20200107
  5. AMPICILLIN [Suspect]
     Active Substance: AMPICILLIN
     Indication: PHARYNGITIS
     Dosage: UNK UNK, DAILY
     Route: 030
     Dates: start: 20191223, end: 20191225
  6. BLINDED ETANERCEPT PLACEBO [Suspect]
     Active Substance: ETANERCEPT
     Indication: PSORIATIC ARTHROPATHY
     Dosage: UNK
     Route: 058
     Dates: start: 20190409, end: 20200107
  7. BLINDED TILDRAKIZUMAB [Suspect]
     Active Substance: TILDRAKIZUMAB
     Indication: PSORIATIC ARTHROPATHY
     Dosage: UNK
     Route: 058
     Dates: start: 20190409, end: 20200107
  8. CHLORPHENIRAMINE. [Suspect]
     Active Substance: CHLORPHENIRAMINE
     Indication: PHARYNGITIS
     Dosage: UNK, QD
     Route: 030
     Dates: start: 20191223, end: 20191225
  9. BLINDED ETANERCEPT [Suspect]
     Active Substance: ETANERCEPT
     Indication: PSORIATIC ARTHROPATHY
     Dosage: UNK
     Route: 058
     Dates: start: 20190409, end: 20200107

REACTIONS (1)
  - Rhabdomyolysis [Recovering/Resolving]

NARRATIVE: CASE EVENT DATE: 20191231
